FAERS Safety Report 25617383 (Version 1)
Quarter: 2025Q3

REPORT INFORMATION
  Report Type: Spontaneous
  Country: JP (occurrence: JP)
  Receive Date: 20250729
  Receipt Date: 20250729
  Transmission Date: 20251021
  Serious: Yes (Other)
  Sender: BRACCO
  Company Number: JP-BAYER-2025A098535

PATIENT
  Age: 7 Decade
  Sex: Male

DRUGS (1)
  1. IOPAMIRON [Suspect]
     Active Substance: IOPAMIDOL
     Indication: Catheterisation cardiac

REACTIONS (2)
  - Contraindicated product administered [Unknown]
  - Anaphylactic shock [Recovering/Resolving]
